FAERS Safety Report 6805542-7 (Version None)
Quarter: 2010Q2

REPORT INFORMATION
  Report Type: 
  Country: None (occurrence: None)
  Receive Date: 20100628
  Receipt Date: 20071230
  Transmission Date: 20101027
  Serious: No
  Sender: FDA-Public Use
  Company Number: US-PFIZER INC-2008000288

PATIENT
  Sex: Female
  Weight: 47.7 kg

DRUGS (1)
  1. GEODON [Suspect]
     Indication: ANXIETY
     Dates: start: 20071101

REACTIONS (4)
  - DYSPNOEA [None]
  - HEADACHE [None]
  - INSOMNIA [None]
  - TACHYPHRENIA [None]
